FAERS Safety Report 4675708-3 (Version None)
Quarter: 2005Q2

REPORT INFORMATION
  Report Type: 
  Country: None (occurrence: None)
  Receive Date: 20050527
  Receipt Date: 20050211
  Transmission Date: 20051028
  Serious: Yes (Hospitalization)
  Sender: FDA-Public Use
  Company Number: US-BRISTOL-MYERS SQUIBB COMPANY-12858502

PATIENT
  Sex: Male

DRUGS (2)
  1. ERBITUX [Suspect]
     Indication: COLORECTAL CANCER METASTATIC
     Dosage: RECEIVED 6-7 DOSES, START DATE APPROX. DECEMBER 2004
     Route: 042
  2. BLOOD PRESSURE MEDICATION [Concomitant]

REACTIONS (1)
  - INTERSTITIAL LUNG DISEASE [None]
